FAERS Safety Report 6046566-X (Version None)
Quarter: 2009Q1

REPORT INFORMATION
  Report Type: 
  Country: None (occurrence: None)
  Receive Date: 20090122
  Receipt Date: 20090112
  Transmission Date: 20090719
  Serious: Yes (Other)
  Sender: FDA-Public Use
  Company Number: PHBS2009US00487

PATIENT
  Age: 42 Year
  Sex: Male

DRUGS (4)
  1. IMATINIB MESYLATE [Suspect]
     Indication: NEOPLASM MALIGNANT
     Dosage: 400 MG DAILY
  2. VENLAFAXINE [Concomitant]
  3. METHYLPHENIDATE HCL [Concomitant]
     Dosage: UNK
  4. TRAZODONE HCL [Concomitant]

REACTIONS (8)
  - ANHEDONIA [None]
  - APATHY [None]
  - DEPRESSED MOOD [None]
  - FATIGUE [None]
  - INSOMNIA [None]
  - IRRITABILITY [None]
  - MAJOR DEPRESSION [None]
  - MEMORY IMPAIRMENT [None]
